FAERS Safety Report 21287488 (Version 1)
Quarter: 2022Q3

REPORT INFORMATION
  Report Type: Spontaneous
  Country: US (occurrence: US)
  Receive Date: 20220902
  Receipt Date: 20220902
  Transmission Date: 20221027
  Serious: No
  Sender: FDA-Public Use
  Company Number: US-ABBVIE-22K-163-4503893-00

PATIENT
  Sex: Female

DRUGS (1)
  1. SKYRIZI [Suspect]
     Active Substance: RISANKIZUMAB-RZAA
     Indication: Psoriasis
     Dosage: INITIAL INJECTION DOSE
     Route: 058
     Dates: start: 20220809, end: 202208

REACTIONS (2)
  - Rash [Recovered/Resolved]
  - Tracheal oedema [Recovered/Resolved]

NARRATIVE: CASE EVENT DATE: 20220810
